FAERS Safety Report 11343681 (Version 1)
Quarter: 2015Q3

REPORT INFORMATION
  Report Type: Spontaneous
  Country: US (occurrence: None)
  Receive Date: 20150804
  Receipt Date: 20150804
  Transmission Date: 20151125
  Serious: Yes (Hospitalization)
  Sender: FDA-Public Use
  Company Number: None

PATIENT
  Age: 59 Year
  Sex: Female
  Weight: 71.4 kg

DRUGS (2)
  1. CARBOPLATIN. [Suspect]
     Active Substance: CARBOPLATIN
     Dates: start: 20150709
  2. TAXOL [Suspect]
     Active Substance: PACLITAXEL
     Dates: start: 20150709

REACTIONS (10)
  - Blood potassium decreased [None]
  - Pyrexia [None]
  - Hypoxia [None]
  - White blood cell count decreased [None]
  - Hypokalaemia [None]
  - Neutropenia [None]
  - Haemoglobin decreased [None]
  - Mental status changes [None]
  - Lymphocyte count decreased [None]
  - Platelet count decreased [None]

NARRATIVE: CASE EVENT DATE: 20150715
